FAERS Safety Report 7913473-4 (Version None)
Quarter: 2011Q4

REPORT INFORMATION
  Report Type: 
  Country: None (occurrence: None)
  Receive Date: 20111110
  Receipt Date: 20111104
  Transmission Date: 20120403
  Serious: Yes (Death, Other)
  Sender: FDA-Public Use
  Company Number: 2011SP051883

PATIENT
  Age: 72 Year
  Sex: Female

DRUGS (10)
  1. LITHIUM CITRATE [Suspect]
     Indication: SCHIZOAFFECTIVE DISORDER
     Dosage: PO
     Route: 048
     Dates: end: 20111023
  2. FRAGMIN [Concomitant]
  3. ZIPRASIDONE HCL [Suspect]
     Indication: SCHIZOAFFECTIVE DISORDER
     Dosage: 40 MG;BID;PO
     Route: 048
     Dates: end: 20111023
  4. AMLODIPINE [Concomitant]
  5. FERRO DURETTER [Concomitant]
  6. K CL TAB [Concomitant]
  7. MIRTAZAPINE [Suspect]
     Indication: SCHIZOAFFECTIVE DISORDER
     Dosage: 30 MG;QD;PO
     Route: 048
     Dates: end: 20111023
  8. ALPRAZOLAM [Concomitant]
  9. FUROSEMIDE [Concomitant]
  10. ESCITALOPRAM [Suspect]
     Indication: SCHIZOAFFECTIVE DISORDER
     Dosage: 30 MG;QD;PO
     Route: 048
     Dates: end: 20111023

REACTIONS (7)
  - NEUROLEPTIC MALIGNANT SYNDROME [None]
  - RENAL FAILURE [None]
  - FALL [None]
  - ORGAN FAILURE [None]
  - LACTIC ACIDOSIS [None]
  - RHABDOMYOLYSIS [None]
  - HUMERUS FRACTURE [None]
